FAERS Safety Report 24892408 (Version 2)
Quarter: 2025Q4

REPORT INFORMATION
  Report Type: Spontaneous
  Country: CA (occurrence: CA)
  Receive Date: 20250128
  Receipt Date: 20251017
  Transmission Date: 20260118
  Serious: Yes (Hospitalization)
  Sender: DR REDDYS
  Company Number: None

PATIENT
  Age: 79 Year
  Sex: Female

DRUGS (14)
  1. AZACITIDINE [Suspect]
     Active Substance: AZACITIDINE
     Indication: Acute myeloid leukaemia
  2. AZACITIDINE [Suspect]
     Active Substance: AZACITIDINE
  3. AZACITIDINE [Suspect]
     Active Substance: AZACITIDINE
  4. AZACITIDINE [Suspect]
     Active Substance: AZACITIDINE
  5. AZACITIDINE [Suspect]
     Active Substance: AZACITIDINE
  6. AZACITIDINE [Suspect]
     Active Substance: AZACITIDINE
  7. AZACITIDINE [Suspect]
     Active Substance: AZACITIDINE
  8. AZACITIDINE [Suspect]
     Active Substance: AZACITIDINE
  9. AZACITIDINE [Suspect]
     Active Substance: AZACITIDINE
  10. VENETOCLAX [Suspect]
     Active Substance: VENETOCLAX
     Indication: Acute myeloid leukaemia
     Route: 048
  11. VENETOCLAX [Suspect]
     Active Substance: VENETOCLAX
     Route: 048
  12. VENETOCLAX [Suspect]
     Active Substance: VENETOCLAX
     Route: 048
  13. VENETOCLAX [Suspect]
     Active Substance: VENETOCLAX
     Route: 048
  14. VENETOCLAX [Suspect]
     Active Substance: VENETOCLAX
     Route: 048

REACTIONS (1)
  - Hyponatraemia [Recovered/Resolved]
